FAERS Safety Report 19490737 (Version 1)
Quarter: 2021Q3

REPORT INFORMATION
  Report Type: Spontaneous
  Country: IT (occurrence: IT)
  Receive Date: 20210705
  Receipt Date: 20210705
  Transmission Date: 20211014
  Serious: Yes (Other)
  Sender: FDA-Public Use
  Company Number: IT-BEH-2021133418

PATIENT
  Age: 2 Year

DRUGS (3)
  1. PRIVIGEN [Suspect]
     Active Substance: HUMAN IMMUNOGLOBULIN G
     Indication: PRODUCT USED FOR UNKNOWN INDICATION
     Route: 042
     Dates: start: 20210531, end: 20210531
  2. PARACETAMOL [Concomitant]
     Active Substance: ACETAMINOPHEN
     Route: 042
  3. TRIMETON [SULFAMETHOXAZOLE;TRIMETHOPRIM] [Concomitant]
     Indication: PREMEDICATION
     Dosage: UNK
     Dates: start: 202106

REACTIONS (2)
  - Rash maculo-papular [Recovered/Resolved]
  - Hyperpyrexia [Recovered/Resolved]

NARRATIVE: CASE EVENT DATE: 20210531
